FAERS Safety Report 9611014 (Version 2)
Quarter: 2013Q4

REPORT INFORMATION
  Report Type: Spontaneous
  Country: US (occurrence: US)
  Receive Date: 20131009
  Receipt Date: 20131024
  Transmission Date: 20140711
  Serious: Yes (Other)
  Sender: FDA-Public Use
  Company Number: US-GLAXOSMITHKLINE-A1044786A

PATIENT
  Age: 78 Year
  Sex: Female

DRUGS (2)
  1. ADVAIR [Suspect]
     Indication: PULMONARY FIBROSIS
     Route: 065
     Dates: start: 20110816
  2. UNKNOWN MEDICATION [Concomitant]
     Indication: THROMBOSIS

REACTIONS (3)
  - Cardiac operation [Unknown]
  - Thrombosis [Unknown]
  - Surgery [Unknown]
